FAERS Safety Report 17367502 (Version 2)
Quarter: 2020Q1

REPORT INFORMATION
  Report Type: Spontaneous
  Country: TR (occurrence: TR)
  Receive Date: 20200204
  Receipt Date: 20200210
  Transmission Date: 20200409
  Serious: Yes (Other)
  Sender: FDA-Public Use
  Company Number: TR-MYLANLABS-2018M1068719

PATIENT
  Age: 21 Year
  Sex: Female

DRUGS (7)
  1. CLOZAPINE. [Suspect]
     Active Substance: CLOZAPINE
     Dosage: 400 MG, QD/400 MG, UP-TITRATED TO 400 MG/DAY OVER 7 WEEKS
     Route: 065
  2. CLOZAPINE. [Suspect]
     Active Substance: CLOZAPINE
     Dosage: 400 MG, QD
  3. QUETIAPINE. [Concomitant]
     Active Substance: QUETIAPINE
     Indication: SCHIZOPHRENIA
     Dosage: 800 MG, QD (800 MG, THERAPEUTIC LEVEL OVER 6 WEEKS)
     Route: 065
  4. OLANZAPINE. [Concomitant]
     Active Substance: OLANZAPINE
     Indication: SCHIZOPHRENIA
     Dosage: 30 MG, QD (30 MG, THERAPEUTIC LEVEL OVER 6 WEEKS)
     Route: 065
  5. CLOZAPINE. [Suspect]
     Active Substance: CLOZAPINE
     Dosage: 300 MG, QD
     Route: 065
  6. CLOZAPINE. [Suspect]
     Active Substance: CLOZAPINE
     Indication: SCHIZOPHRENIA
     Dosage: 25 MILLIGRAM, QD
     Route: 065
  7. HALOPERIDOL. [Concomitant]
     Active Substance: HALOPERIDOL
     Indication: SCHIZOPHRENIA
     Dosage: 20 MG, QD (20 MG, THERAPEUTIC LEVEL OVER 6 WEEKS)
     Route: 065

REACTIONS (5)
  - Delusion [Recovering/Resolving]
  - Drug ineffective [Unknown]
  - Drop attacks [Recovered/Resolved]
  - Atonic seizures [Recovered/Resolved]
  - Hallucination [Recovering/Resolving]
